FAERS Safety Report 6711685-9 (Version None)
Quarter: 2010Q2

REPORT INFORMATION
  Report Type: 
  Country: None (occurrence: None)
  Receive Date: 20100505
  Receipt Date: 20100427
  Transmission Date: 20101027
  Serious: Yes (Other)
  Sender: FDA-Public Use
  Company Number: FR-AMGEN-QUU398935

PATIENT
  Sex: Female
  Weight: 43 kg

DRUGS (6)
  1. ARANESP [Suspect]
     Indication: DRUG USE FOR UNKNOWN INDICATION
     Route: 058
     Dates: start: 20040101, end: 20100309
  2. PRAXILENE [Concomitant]
     Route: 048
     Dates: start: 20100101
  3. UNSPECIFIED MEDICATION [Concomitant]
  4. ASPEGIC 1000 [Concomitant]
     Route: 048
     Dates: start: 20100201
  5. PANTOPRAZOLE SODIUM [Concomitant]
     Route: 048
     Dates: start: 20000201
  6. CALCIDOSE [Concomitant]
     Route: 048

REACTIONS (4)
  - ARTHRALGIA [None]
  - BONE MARROW DISORDER [None]
  - BURSITIS [None]
  - SPINAL OSTEOARTHRITIS [None]
